FAERS Safety Report 7436315-2 (Version None)
Quarter: 2011Q2

REPORT INFORMATION
  Report Type: 
  Country: None (occurrence: None)
  Receive Date: 20110426
  Receipt Date: 20110415
  Transmission Date: 20111010
  Serious: Yes (Hospitalization)
  Sender: FDA-Public Use
  Company Number: US-BIOGENIDEC-2011BI013401

PATIENT
  Age: 36 Year
  Sex: Female

DRUGS (1)
  1. TYSABRI [Suspect]
     Indication: CROHN'S DISEASE
     Route: 042
     Dates: start: 20080424, end: 20110209

REACTIONS (7)
  - CROHN'S DISEASE [None]
  - LACTOBACILLUS INFECTION [None]
  - BACTERIAL SEPSIS [None]
  - CANDIDA SEPSIS [None]
  - THROMBOTIC THROMBOCYTOPENIC PURPURA [None]
  - PNEUMONIA [None]
  - RENAL FAILURE ACUTE [None]
